FAERS Safety Report 12602740 (Version 1)
Quarter: 2016Q3

REPORT INFORMATION
  Report Type: Spontaneous
  Country: IN (occurrence: IN)
  Receive Date: 20160728
  Receipt Date: 20160728
  Transmission Date: 20161109
  Serious: Yes (Hospitalization)
  Sender: FDA-Public Use
  Company Number: IN-PFIZER INC-2015281178

PATIENT
  Age: 72 Year
  Sex: Male

DRUGS (3)
  1. SUTENT [Suspect]
     Active Substance: SUNITINIB MALATE
     Indication: METASTATIC RENAL CELL CARCINOMA
     Dosage: 25 MG, 1X/DAY
     Route: 048
     Dates: start: 20150405, end: 20150903
  2. SUTENT [Suspect]
     Active Substance: SUNITINIB MALATE
     Dosage: UNK
     Dates: start: 20150914, end: 20151113
  3. SUTENT [Suspect]
     Active Substance: SUNITINIB MALATE
     Dosage: 25 UNK, UNK
     Route: 048
     Dates: end: 20160606

REACTIONS (16)
  - Lacrimation increased [Recovered/Resolved]
  - Disease progression [Unknown]
  - Frequent bowel movements [Recovered/Resolved]
  - Metastatic renal cell carcinoma [Unknown]
  - Dry skin [Recovered/Resolved]
  - Skin exfoliation [Recovered/Resolved]
  - Hypoalbuminaemia [Recovered/Resolved]
  - Vertigo [Unknown]
  - Asthenia [Unknown]
  - Skin discolouration [Not Recovered/Not Resolved]
  - Blister [Recovering/Resolving]
  - Oedema [Unknown]
  - Abdominal pain [Unknown]
  - Anaemia [Unknown]
  - Burning sensation [Recovered/Resolved]
  - Dizziness [Unknown]

NARRATIVE: CASE EVENT DATE: 2015
